FAERS Safety Report 9756026 (Version 1)
Quarter: 2013Q4

REPORT INFORMATION
  Report Type: Spontaneous
  Country: FR (occurrence: FR)
  Receive Date: 20131213
  Receipt Date: 20131213
  Transmission Date: 20140711
  Serious: Yes (Hospitalization)
  Sender: FDA-Public Use
  Company Number: FR-GLAXOSMITHKLINE-B0911526A

PATIENT
  Age: 34 Year
  Sex: Female

DRUGS (2)
  1. SORIATANE [Suspect]
     Indication: DYSPLASIA
     Route: 048
     Dates: start: 201304, end: 201305
  2. ORAL CONTRACEPTIVE [Concomitant]

REACTIONS (1)
  - Ulcerative keratitis [Recovered/Resolved]
